FAERS Safety Report 9770273 (Version 2)
Quarter: 2013Q4

REPORT INFORMATION
  Report Type: Spontaneous
  Country: IT (occurrence: IT)
  Receive Date: 20131218
  Receipt Date: 20131218
  Transmission Date: 20140711
  Serious: Yes (Hospitalization)
  Sender: FDA-Public Use
  Company Number: IT-WATSON-2013-22819

PATIENT
  Age: 47 Year
  Sex: Female

DRUGS (2)
  1. CIPROFLOXACIN HYDROCHLORIDE (UNKNOWN) [Suspect]
     Indication: INFLUENZA
     Dosage: 500 MG, SINGLE
     Route: 048
     Dates: start: 20130313, end: 20130313
  2. EPHEDRINE HYDROCHLORIDE [Concomitant]
     Indication: INFLUENZA
     Dosage: UNK
     Dates: start: 20130313, end: 20130313

REACTIONS (2)
  - Loss of consciousness [Recovering/Resolving]
  - Face oedema [Recovering/Resolving]
